FAERS Safety Report 9716279 (Version 1)
Quarter: 2013Q4

REPORT INFORMATION
  Report Type: Spontaneous
  Country: US (occurrence: US)
  Receive Date: 20131127
  Receipt Date: 20131127
  Transmission Date: 20140711
  Serious: No
  Sender: FDA-Public Use
  Company Number: US-ENDO PHARMACEUTICALS INC.-HCDA20110039

PATIENT
  Age: 53 Year
  Sex: Male

DRUGS (1)
  1. HYDROCODONE/ACETAMINOPHEN 10MG/500MG [Suspect]
     Indication: PAIN
     Dosage: UNKNOWN
     Route: 048
     Dates: start: 20110810

REACTIONS (1)
  - Drug ineffective [Not Recovered/Not Resolved]
